FAERS Safety Report 10952865 (Version 1)
Quarter: 2015Q1

REPORT INFORMATION
  Report Type: Spontaneous
  Country: US (occurrence: US)
  Receive Date: 20150325
  Receipt Date: 20150325
  Transmission Date: 20150721
  Serious: No
  Sender: FDA-Public Use
  Company Number: US-009507513-1503USA011454

PATIENT
  Sex: Male

DRUGS (1)
  1. AFRIN [Suspect]
     Active Substance: OXYMETAZOLINE
     Indication: NASAL CONGESTION
     Dosage: UNK, UNKNOWN
     Route: 045
     Dates: start: 20150318

REACTIONS (1)
  - Drug effect decreased [Unknown]

NARRATIVE: CASE EVENT DATE: 20150319
